FAERS Safety Report 13229376 (Version 1)
Quarter: 2017Q1

REPORT INFORMATION
  Report Type: Spontaneous
  Country: US (occurrence: US)
  Receive Date: 20170213
  Receipt Date: 20170213
  Transmission Date: 20170428
  Serious: Yes (Other)
  Sender: FDA-Public Use
  Company Number: None

PATIENT
  Age: 50 Year
  Sex: Male
  Weight: 94.5 kg

DRUGS (11)
  1. AMLODIPINE [Concomitant]
     Active Substance: AMLODIPINE BESYLATE
  2. COREG / CSRVEDILOL [Concomitant]
  3. BUMETANIDE 1MG [Suspect]
     Active Substance: BUMETANIDE
     Indication: END STAGE RENAL DISEASE
     Dosage: ?          QUANTITY:1 TABLET(S);?
     Route: 048
     Dates: start: 20170203, end: 20170212
  4. LANTUS PEN [Concomitant]
  5. NORVASC [Concomitant]
     Active Substance: AMLODIPINE BESYLATE
  6. ASPIRIN. [Concomitant]
     Active Substance: ASPIRIN
  7. STRATTERA [Concomitant]
     Active Substance: ATOMOXETINE HYDROCHLORIDE
  8. NORTRIPTYLIN [Concomitant]
     Active Substance: NORTRIPTYLINE
  9. CAL ACETATE [Concomitant]
  10. PRILOSEC [Concomitant]
     Active Substance: OMEPRAZOLE MAGNESIUM
  11. HUMALOG PEN [Concomitant]
     Active Substance: INSULIN LISPRO

REACTIONS (8)
  - Condition aggravated [None]
  - Headache [None]
  - Musculoskeletal disorder [None]
  - Lower limb fracture [None]
  - Myalgia [None]
  - Fall [None]
  - Gait disturbance [None]
  - Muscle disorder [None]

NARRATIVE: CASE EVENT DATE: 20170213
